FAERS Safety Report 10256578 (Version 1)
Quarter: 2014Q2

REPORT INFORMATION
  Report Type: Spontaneous
  Country: GB (occurrence: GB)
  Receive Date: 20140624
  Receipt Date: 20140624
  Transmission Date: 20141212
  Serious: Yes (Other)
  Sender: FDA-Public Use
  Company Number: PHHY2014GB073517

PATIENT
  Age: 54 Year
  Sex: Male
  Weight: 92 kg

DRUGS (10)
  1. ATORVASTATIN [Suspect]
     Indication: BLOOD CHOLESTEROL INCREASED
     Dosage: 40 MG, UNK
     Route: 048
     Dates: start: 20100909, end: 20130910
  2. ASPIRIN [Concomitant]
     Dosage: 75 MG, UNK
  3. BISOPROLOL FUMARATE [Concomitant]
     Dosage: 2.5 MG, UNK
  4. COENZYME Q10 [Concomitant]
  5. OMEGA 3 FISH OIL [Concomitant]
  6. RAMIPRIL [Concomitant]
  7. SPIRONOLACTONE [Concomitant]
  8. VITAMIN B COMPLEX [Concomitant]
  9. VITAMIN D3 [Concomitant]
  10. VITAMIN E [Concomitant]

REACTIONS (3)
  - Plantar fasciitis [Recovered/Resolved with Sequelae]
  - Arthralgia [Recovered/Resolved with Sequelae]
  - Arthralgia [Recovered/Resolved]
